FAERS Safety Report 12229642 (Version 4)
Quarter: 2020Q3

REPORT INFORMATION
  Report Type: Spontaneous
  Country: US (occurrence: US)
  Receive Date: 20160401
  Receipt Date: 20200813
  Transmission Date: 20201102
  Serious: Yes (Hospitalization)
  Sender: FDA-Public Use
  Company Number: US-JNJFOC-20160320871

PATIENT
  Age: 77 Year
  Sex: Female

DRUGS (2)
  1. XARELTO [Suspect]
     Active Substance: RIVAROXABAN
     Indication: PULMONARY EMBOLISM
     Dosage: VARIED DOSES OF 15 MG AND 20 MG
     Route: 048
     Dates: start: 20140804
  2. XARELTO [Suspect]
     Active Substance: RIVAROXABAN
     Dosage: VARIED DOSES OF 15 MG AND 20 MG
     Route: 048
     Dates: start: 20141229, end: 20150811

REACTIONS (2)
  - Gastrointestinal haemorrhage [Recovering/Resolving]
  - Small intestinal haemorrhage [Recovered/Resolved]

NARRATIVE: CASE EVENT DATE: 20150504
